FAERS Safety Report 4559435-9 (Version None)
Quarter: 2005Q1

REPORT INFORMATION
  Report Type: 
  Country: None (occurrence: None)
  Receive Date: 20050119
  Receipt Date: 20050106
  Transmission Date: 20050727
  Serious: No
  Sender: FDA-Public Use
  Company Number: 2004UW25814

PATIENT
  Age: 42 Year
  Sex: Male
  Weight: 65 kg

DRUGS (4)
  1. ATENOLOL [Suspect]
     Dosage: 50 MG PO
     Route: 048
     Dates: start: 20040501, end: 20041219
  2. SULFADIAZINE [Suspect]
     Indication: TOXOPLASMOSIS
     Dates: start: 20041211, end: 20041219
  3. DARAPRIM [Suspect]
     Indication: TOXOPLASMOSIS
     Dates: start: 20041211, end: 20041219
  4. POLARAMINE [Concomitant]

REACTIONS (2)
  - DRUG HYPERSENSITIVITY [None]
  - PARAESTHESIA [None]
